FAERS Safety Report 21212740 (Version 4)
Quarter: 2022Q4

REPORT INFORMATION
  Report Type: Spontaneous
  Country: CN (occurrence: CN)
  Receive Date: 20220815
  Receipt Date: 20221027
  Transmission Date: 20230112
  Serious: Yes (Life-Threatening, Hospitalization, Other)
  Sender: FDA-Public Use
  Company Number: CN-MLMSERVICE-20220801-3707832-1

PATIENT
  Age: 73 Year
  Sex: Male

DRUGS (2)
  1. METRONIDAZOLE [Suspect]
     Active Substance: METRONIDAZOLE
     Indication: Dermatitis
     Dosage: UNK
     Route: 048
  2. METHYLPREDNISOLONE SODIUM SUCCINATE [Suspect]
     Active Substance: METHYLPREDNISOLONE SODIUM SUCCINATE
     Indication: Dermatitis
     Dosage: 60MG, IVGTT QD
     Route: 042

REACTIONS (6)
  - Fulminant type 1 diabetes mellitus [Recovering/Resolving]
  - Hyperglycaemia [Recovering/Resolving]
  - Diabetic ketosis [Recovering/Resolving]
  - Liver injury [Recovering/Resolving]
  - Dermatitis [Recovering/Resolving]
  - Ocular icterus [Recovering/Resolving]
